FAERS Safety Report 5982542-0 (Version None)
Quarter: 2008Q4

REPORT INFORMATION
  Report Type: 
  Country: None (occurrence: None)
  Receive Date: 20081208
  Receipt Date: 20081201
  Transmission Date: 20090506
  Serious: Yes (Hospitalization)
  Sender: FDA-Public Use
  Company Number: US-CELGENEUS-163-21880-08090337

PATIENT
  Sex: Male

DRUGS (2)
  1. REVLIMID [Suspect]
     Indication: MULTIPLE MYELOMA
     Route: 048
     Dates: start: 20080618, end: 20080801
  2. REVLIMID [Suspect]
     Route: 048
     Dates: start: 20070517, end: 20070601

REACTIONS (2)
  - EAR PAIN [None]
  - PYREXIA [None]
